FAERS Safety Report 4324269-7 (Version None)
Quarter: 2004Q1

REPORT INFORMATION
  Report Type: 
  Country: None (occurrence: None)
  Receive Date: 20040326
  Receipt Date: 20040119
  Transmission Date: 20041129
  Serious: No
  Sender: FDA-Public Use
  Company Number: US-GLAXOSMITHKLINE-A0493927A

PATIENT
  Age: 65 Year
  Sex: Male

DRUGS (9)
  1. ADVAIR DISKUS 100/50 [Suspect]
     Indication: ASTHMA
     Dosage: 1PUFF TWICE PER DAY
     Route: 055
  2. PREDNISONE [Concomitant]
  3. ATROVENT [Concomitant]
  4. QVAR 40 [Concomitant]
  5. ALBUTEROL [Concomitant]
  6. AMOXICILLIN AND CLAVULANATE POTASSIUM [Concomitant]
  7. HYTRIN [Concomitant]
  8. VIT B COMPLEX [Concomitant]
  9. POTASSIUM [Concomitant]

REACTIONS (2)
  - CHRONIC SINUSITIS [None]
  - GINGIVAL PAIN [None]
